FAERS Safety Report 9860611 (Version 2)
Quarter: 2014Q1

REPORT INFORMATION
  Report Type: Spontaneous
  Country: AT (occurrence: AT)
  Receive Date: 20140202
  Receipt Date: 20140202
  Transmission Date: 20141002
  Serious: No
  Sender: FDA-Public Use
  Company Number: AT-ALLERGAN-1206685US

PATIENT
  Sex: Female

DRUGS (1)
  1. BOTOX LYOPHILISAT [Suspect]
     Indication: SKIN WRINKLING
     Dosage: UNK
     Route: 030

REACTIONS (1)
  - Alopecia [Recovered/Resolved]
